APPROVED DRUG PRODUCT: CARBIDOPA AND LEVODOPA
Active Ingredient: CARBIDOPA; LEVODOPA
Strength: 10MG;100MG
Dosage Form/Route: TABLET, ORALLY DISINTEGRATING;ORAL
Application: A078893 | Product #001 | TE Code: AB
Applicant: RISING PHARMA HOLDING INC
Approved: Sep 18, 2008 | RLD: No | RS: No | Type: RX